FAERS Safety Report 6845485-6 (Version None)
Quarter: 2010Q3

REPORT INFORMATION
  Report Type: 
  Country: None (occurrence: None)
  Receive Date: 20100715
  Receipt Date: 20070912
  Transmission Date: 20110219
  Serious: No
  Sender: FDA-Public Use
  Company Number: US-PFIZER INC-2007070179

PATIENT
  Age: 51 Year
  Sex: Female
  Weight: 84.1 kg

DRUGS (16)
  1. CHANTIX [Suspect]
     Indication: SMOKING CESSATION THERAPY
     Dates: start: 20070701, end: 20070701
  2. CRESTOR [Concomitant]
  3. DYAZIDE [Concomitant]
     Dosage: 37.5/25
  4. ZETIA [Concomitant]
  5. ABILIFY [Concomitant]
  6. LAMICTAL [Concomitant]
  7. ATIVAN [Concomitant]
  8. NEXIUM [Concomitant]
  9. ESTRATEST [Concomitant]
  10. TAPAZOL [Concomitant]
  11. MILK OF MAGNESIA TAB [Concomitant]
  12. STOOL SOFTENER [Concomitant]
  13. ACETYLSALICYLIC ACID [Concomitant]
  14. ULTRAM [Concomitant]
  15. ELAVIL [Concomitant]
  16. CELEBREX [Concomitant]

REACTIONS (2)
  - FEELING COLD [None]
  - HOT FLUSH [None]
